FAERS Safety Report 8481575-2 (Version None)
Quarter: 2012Q2

REPORT INFORMATION
  Report Type: 
  Country: None (occurrence: None)
  Receive Date: 20120615
  Receipt Date: 20120604
  Transmission Date: 20120825
  Serious: Yes (Other)
  Sender: FDA-Public Use
  Company Number: DSA_57816_2012

PATIENT

DRUGS (3)
  1. FLUOROURACIL [Suspect]
     Indication: GASTRIC CANCER
     Dosage: (1000 MG/M2 INTRAVENOUS (NOT OTHERWISE SPECIFIED)), (400 MG/M2 INTRAVENOUS BOLUS), (2400-3600 MG/M2)
     Route: 042
  2. THERAPEUTIC RADIOPHARMACEUTICALS (THERAPEUTIC RADIOPHARMACEUTICALS) [Suspect]
     Indication: GASTRIC CANCER
     Dosage: (DF)
  3. LEUCOVORIN CALCIUM [Suspect]
     Indication: GASTRIC CANCER
     Dosage: (200 MG/M2)

REACTIONS (1)
  - MYOCARDIAL INFARCTION [None]
